FAERS Safety Report 15774301 (Version 1)
Quarter: 2018Q4

REPORT INFORMATION
  Report Type: Spontaneous
  Country: GB (occurrence: GB)
  Receive Date: 20181229
  Receipt Date: 20181229
  Transmission Date: 20190205
  Serious: Yes (Hospitalization, Other)
  Sender: FDA-Public Use
  Company Number: GB-MICRO LABS LIMITED-ML2018-02858

PATIENT
  Age: 55 Year
  Sex: Female
  Weight: 73.02 kg

DRUGS (4)
  1. IBUPROFEN. [Suspect]
     Active Substance: IBUPROFEN
  2. MULTIVITAMIN [Concomitant]
     Active Substance: VITAMINS
  3. HRT [Concomitant]
     Active Substance: UNSPECIFIED INGREDIENT
  4. LOSARTAN. [Suspect]
     Active Substance: LOSARTAN
     Indication: HYPERTENSION
     Route: 048
     Dates: start: 2014

REACTIONS (3)
  - Inhibitory drug interaction [Unknown]
  - Hypertension [Recovered/Resolved]
  - Malaise [Unknown]

NARRATIVE: CASE EVENT DATE: 2018
